FAERS Safety Report 4782303-4 (Version None)
Quarter: 2005Q3

REPORT INFORMATION
  Report Type: 
  Country: None (occurrence: None)
  Receive Date: 20050914
  Receipt Date: 20050511
  Transmission Date: 20060218
  Serious: Yes (Hospitalization)
  Sender: FDA-Public Use
  Company Number: 163-20785-05050204

PATIENT
  Age: 58 Year
  Sex: Male

DRUGS (2)
  1. THALOMID [Suspect]
     Indication: MULTIPLE MYELOMA
     Dosage: 200 MG QHS ORAL
     Route: 048
     Dates: start: 20050314, end: 20050507
  2. DECADRON [Concomitant]

REACTIONS (2)
  - THROMBOSIS [None]
  - URINARY TRACT INFECTION [None]
